FAERS Safety Report 7897575-7 (Version None)
Quarter: 2011Q4

REPORT INFORMATION
  Report Type: 
  Country: None (occurrence: None)
  Receive Date: 20111107
  Receipt Date: 20111031
  Transmission Date: 20120403
  Serious: Yes (Other)
  Sender: FDA-Public Use
  Company Number: US-PFIZER INC-2011267132

PATIENT
  Age: 52 Year
  Sex: Male
  Weight: 78 kg

DRUGS (6)
  1. VANCOMYCIN [Concomitant]
     Dosage: 1200 MG, EVERY 12 HO URS
  2. ACETAMINOPHEN [Concomitant]
  3. MEROPENEM [Concomitant]
     Dosage: 1 G, 8 HOURS
  4. ANIDULAFUNGIN [Suspect]
     Dosage: 100 MG, 1X/DAY
     Route: 042
  5. ANIDULAFUNGIN [Suspect]
     Indication: FUNGAL INFECTION
     Dosage: 200 MG, UNK
     Route: 042
  6. ACYCLOVIR [Concomitant]

REACTIONS (1)
  - ACUTE PULMONARY OEDEMA [None]
